FAERS Safety Report 7595210-9 (Version None)
Quarter: 2011Q3

REPORT INFORMATION
  Report Type: 
  Country: None (occurrence: None)
  Receive Date: 20110707
  Receipt Date: 20110629
  Transmission Date: 20111222
  Serious: No
  Sender: FDA-Public Use
  Company Number: JP-JNJFOC-20110609348

PATIENT
  Age: 62 Year
  Sex: Male

DRUGS (1)
  1. FENTANYL-100 [Suspect]
     Indication: CANCER PAIN
     Route: 062

REACTIONS (2)
  - DRUG ADMINISTERED AT INAPPROPRIATE SITE [None]
  - PALPITATIONS [None]
